FAERS Safety Report 17164678 (Version 1)
Quarter: 2019Q4

REPORT INFORMATION
  Report Type: Spontaneous
  Country: US (occurrence: US)
  Receive Date: 20191217
  Receipt Date: 20191217
  Transmission Date: 20200122
  Serious: No
  Sender: FDA-Public Use
  Company Number: US-ROCHE-2214814

PATIENT
  Age: 65 Year
  Sex: Male
  Weight: 103.06 kg

DRUGS (11)
  1. SIMVASTATIN. [Suspect]
     Active Substance: SIMVASTATIN
     Dosage: ONGOING:UNKNOWN;DID NOT TAK LAST NIGHT 11-NOV-2018
     Route: 048
     Dates: start: 20181102
  2. TAMSULOSIN HCL [Suspect]
     Active Substance: TAMSULOSIN HYDROCHLORIDE
     Indication: POLLAKIURIA
     Dosage: 0.4 MG CAPSULE; TAKES IN PM ;ONGOING: YES
     Route: 048
  3. SIMVASTATIN. [Suspect]
     Active Substance: SIMVASTATIN
     Indication: PRODUCT USED FOR UNKNOWN INDICATION
     Dosage: STOPPED FOR MONTH + HALF; ONGOING: NO
     Route: 048
  4. VITAMIN D3 [Concomitant]
     Active Substance: CHOLECALCIFEROL
     Indication: VITAMIN D DEFICIENCY
     Dosage: TAKES IN AM ;ONGOING: YES
     Route: 048
  5. LISINOPRIL. [Concomitant]
     Active Substance: LISINOPRIL
     Indication: BLOOD PRESSURE MEASUREMENT
     Dosage: TAKES IN AM ;ONGOING: YES
     Route: 048
  6. LUCENTIS [Suspect]
     Active Substance: RANIBIZUMAB
     Indication: DIABETIC RETINOPATHY
     Dosage: ONGOING: YES
     Route: 031
     Dates: start: 20181031
  7. AMLODIPINE [Concomitant]
     Active Substance: AMLODIPINE BESYLATE
     Indication: BLOOD PRESSURE INCREASED
     Dosage: TAKES IN AM AND PM ;ONGOING: YES
     Route: 048
  8. METOPROLOL. [Concomitant]
     Active Substance: METOPROLOL
     Dosage: INCREASED DOSE TO 100 MG AT NIGHT ;ONGOING: YES
     Route: 048
  9. METOPROLOL. [Concomitant]
     Active Substance: METOPROLOL
     Indication: BLOOD PRESSURE INCREASED
     Dosage: TOOK IN AM AND PM ;ONGOING: NO
     Route: 048
  10. METOPROLOL. [Concomitant]
     Active Substance: METOPROLOL
     Dosage: TAKES 75 MG IN AM ;ONGOING: YES
     Route: 048
  11. COMBIGAN [Concomitant]
     Active Substance: BRIMONIDINE TARTRATE\TIMOLOL MALEATE
     Dosage: COMBIGAN 0.2-0.5%; 1 DROP IN BOTH EYES
     Route: 031

REACTIONS (3)
  - Dizziness [Not Recovered/Not Resolved]
  - Vertigo positional [Unknown]
  - Nausea [Recovered/Resolved]

NARRATIVE: CASE EVENT DATE: 20181107
